FAERS Safety Report 19360999 (Version 1)
Quarter: 2021Q2

REPORT INFORMATION
  Report Type: Report from Study
  Country: None (occurrence: US)
  Receive Date: 20210602
  Receipt Date: 20210602
  Transmission Date: 20210717
  Serious: No
  Sender: FDA-Public Use
  Company Number: US-MDD US OPERATIONS-USW202003-000475

PATIENT
  Age: 65 Year
  Sex: Male
  Weight: 102.05 kg

DRUGS (18)
  1. QUINAPRIL. [Concomitant]
     Active Substance: QUINAPRIL
     Dosage: 40 MG
  2. PROAIR HFA [Concomitant]
     Active Substance: ALBUTEROL SULFATE
     Dosage: NOT PROVIDED
  3. TADALAFIL. [Concomitant]
     Active Substance: TADALAFIL
  4. CARBIDOPA LEVODOPA [Concomitant]
     Active Substance: CARBIDOPA\LEVODOPA
     Dosage: NOT PROVIDED
  5. RYTARY [Concomitant]
     Active Substance: CARBIDOPA\LEVODOPA
  6. RASAGILINE. [Concomitant]
     Active Substance: RASAGILINE
     Dosage: 1 MG
  7. APOKYN [Suspect]
     Active Substance: APOMORPHINE HYDROCHLORIDE
     Indication: PARKINSON^S DISEASE
     Route: 058
     Dates: start: 20200305
  8. APOKYN [Suspect]
     Active Substance: APOMORPHINE HYDROCHLORIDE
     Route: 058
  9. PRAMIPEXOLE. [Concomitant]
     Active Substance: PRAMIPEXOLE
     Dosage: 4.5 MG
  10. ATORVASTATIN [Concomitant]
     Active Substance: ATORVASTATIN
  11. CLONAZEPAM. [Concomitant]
     Active Substance: CLONAZEPAM
  12. PREVACID [Concomitant]
     Active Substance: LANSOPRAZOLE
     Dosage: NOT PROVIDED
  13. CELECOXIB. [Concomitant]
     Active Substance: CELECOXIB
  14. APOKYN [Suspect]
     Active Substance: APOMORPHINE HYDROCHLORIDE
     Route: 058
     Dates: start: 20200309
  15. RYTARY [Concomitant]
     Active Substance: CARBIDOPA\LEVODOPA
  16. AMANTADINE. [Concomitant]
     Active Substance: AMANTADINE HYDROCHLORIDE
  17. DIAZEPAM. [Concomitant]
     Active Substance: DIAZEPAM
  18. VERAPAMIL HCL [Concomitant]
     Active Substance: VERAPAMIL HYDROCHLORIDE
     Dosage: NOT PROVIDED

REACTIONS (16)
  - Lethargy [Unknown]
  - Heart rate decreased [Unknown]
  - Pain [Recovered/Resolved]
  - Spontaneous penile erection [Recovered/Resolved]
  - Blood pressure decreased [Unknown]
  - Injection site nodule [Unknown]
  - Hallucination, visual [Recovered/Resolved]
  - Feeling abnormal [Recovered/Resolved]
  - Blood pressure abnormal [Unknown]
  - Yawning [Unknown]
  - Dizziness [Recovered/Resolved]
  - Balance disorder [Unknown]
  - Presyncope [Recovered/Resolved]
  - Pallor [Recovered/Resolved]
  - Somnolence [Unknown]
  - Dizziness [Recovered/Resolved]

NARRATIVE: CASE EVENT DATE: 202003
